FAERS Safety Report 13638427 (Version 1)
Quarter: 2017Q2

REPORT INFORMATION
  Report Type: Report from Study
  Country: FR (occurrence: FR)
  Receive Date: 20170609
  Receipt Date: 20170609
  Transmission Date: 20170830
  Serious: Yes (Death, Other)
  Sender: FDA-Public Use
  Company Number: FR-MYLANLABS-2017M1034606

PATIENT

DRUGS (1)
  1. METHYLPHENIDATE. [Suspect]
     Active Substance: METHYLPHENIDATE
     Indication: SUBSTANCE USE
     Dosage: PARACHUTING (WRAPPING) IT FOR RECREATIONAL PURPOSE
     Route: 048

REACTIONS (3)
  - Seizure [Fatal]
  - Drug use disorder [Fatal]
  - Cardio-respiratory arrest [Fatal]

NARRATIVE: CASE EVENT DATE: 2014
